FAERS Safety Report 9203472 (Version 1)
Quarter: 2013Q2

REPORT INFORMATION
  Report Type: Spontaneous
  Country: US (occurrence: US)
  Receive Date: 20130402
  Receipt Date: 20130402
  Transmission Date: 20140414
  Serious: No
  Sender: FDA-Public Use
  Company Number: US-PFIZER INC-2013104017

PATIENT
  Age: 26 Year
  Sex: Female
  Weight: 78.46 kg

DRUGS (6)
  1. XELJANZ [Suspect]
     Indication: RHEUMATOID ARTHRITIS
     Dosage: 5 MG, 2X/DAY
     Route: 048
     Dates: start: 20130321
  2. XELJANZ [Suspect]
     Indication: FIBROMYALGIA
  3. NUCYNTA [Concomitant]
     Dosage: 100 MG, UNK
  4. TRAMADOL HYDROCHLORIDE [Concomitant]
     Dosage: 50 MG, UNK
  5. TIZANIDINE [Concomitant]
     Dosage: 2 MG, UNK
  6. VITAMIN D [Concomitant]
     Dosage: 1000 IU, UNK

REACTIONS (2)
  - Fatigue [Unknown]
  - Nausea [Unknown]
